FAERS Safety Report 6198689-2 (Version None)
Quarter: 2009Q2

REPORT INFORMATION
  Report Type: 
  Country: None (occurrence: None)
  Receive Date: 20090521
  Receipt Date: 20090515
  Transmission Date: 20091009
  Serious: Yes (Other)
  Sender: FDA-Public Use
  Company Number: US-BAXTER-2009BH008842

PATIENT
  Sex: Female

DRUGS (1)
  1. HEPARIN SODIUM INJECTION [Suspect]
     Indication: DRUG USE FOR UNKNOWN INDICATION
     Route: 065
     Dates: start: 20070101, end: 20080101

REACTIONS (6)
  - ADVERSE EVENT [None]
  - ASTHENIA [None]
  - EYE INFECTION [None]
  - HYPOTENSION [None]
  - NAUSEA [None]
  - VOMITING [None]
